FAERS Safety Report 24075270 (Version 4)
Quarter: 2024Q3

REPORT INFORMATION
  Report Type: Spontaneous
  Country: JP (occurrence: JP)
  Receive Date: 20240710
  Receipt Date: 20240909
  Transmission Date: 20241017
  Serious: No
  Sender: PFIZER
  Company Number: JP-PFIZER INC-PV202400086990

PATIENT
  Age: 13 Year
  Sex: Male

DRUGS (1)
  1. NGENLA [Suspect]
     Active Substance: SOMATROGON-GHLA
     Dosage: UNK

REACTIONS (2)
  - Injection site pain [Unknown]
  - Injection site haemorrhage [Unknown]
